FAERS Safety Report 7305661-5 (Version None)
Quarter: 2011Q1

REPORT INFORMATION
  Report Type: 
  Country: None (occurrence: None)
  Receive Date: 20110222
  Receipt Date: 20110214
  Transmission Date: 20110831
  Serious: Yes (Hospitalization, Congenital Anomaly)
  Sender: FDA-Public Use
  Company Number: A0871554A

PATIENT
  Sex: Male
  Weight: 3.5 kg

DRUGS (3)
  1. PAXIL [Suspect]
     Route: 064
  2. ANTIBIOTIC [Concomitant]
     Route: 064
  3. VITAMIN AND MINERAL PRENATAL SUPPLEMENT W/ FOLIC ACID CAP [Concomitant]
     Route: 064
     Dates: end: 19970601

REACTIONS (4)
  - PATENT DUCTUS ARTERIOSUS [None]
  - DRUG EXPOSURE DURING PREGNANCY [None]
  - VENTRICULAR SEPTAL DEFECT [None]
  - ATRIAL SEPTAL DEFECT [None]
